FAERS Safety Report 17345758 (Version 1)
Quarter: 2020Q1

REPORT INFORMATION
  Report Type: Report from Study
  Country: DE (occurrence: DE)
  Receive Date: 20200129
  Receipt Date: 20200129
  Transmission Date: 20200409
  Serious: Yes (Death, Hospitalization)
  Sender: FDA-Public Use
  Company Number: DE-INCYTE CORPORATION-2020IN000503

PATIENT

DRUGS (1)
  1. INCB018424 [Suspect]
     Active Substance: RUXOLITINIB
     Indication: PRIMARY MYELOFIBROSIS
     Dosage: 30 MG/DAY
     Route: 048
     Dates: start: 20190719

REACTIONS (1)
  - Death [Fatal]

NARRATIVE: CASE EVENT DATE: 20200112
